FAERS Safety Report 10097281 (Version 1)
Quarter: 2014Q2

REPORT INFORMATION
  Report Type: Spontaneous
  Country: TR (occurrence: TR)
  Receive Date: 20140422
  Receipt Date: 20140422
  Transmission Date: 20141212
  Serious: Yes (Hospitalization, Other)
  Sender: FDA-Public Use
  Company Number: PHHY2014TR047912

PATIENT
  Age: 53 Year
  Sex: Female

DRUGS (5)
  1. CLOZAPINE [Suspect]
     Indication: SCHIZOPHRENIA
     Dosage: 500 MG, PER DAY
  2. ROSUVASTATIN [Concomitant]
     Indication: HYPERLIPIDAEMIA
     Dosage: 20 MG, PER DAY
  3. IPRATROPIUM BROMIDE [Concomitant]
     Indication: CHRONIC OBSTRUCTIVE PULMONARY DISEASE
  4. SALBUTAMOL SULFATE [Concomitant]
     Indication: CHRONIC OBSTRUCTIVE PULMONARY DISEASE
  5. BUDESONIDE [Concomitant]
     Indication: CHRONIC OBSTRUCTIVE PULMONARY DISEASE

REACTIONS (32)
  - Toxicity to various agents [Unknown]
  - Confusional state [Recovered/Resolved]
  - Chills [Unknown]
  - Urinary incontinence [Unknown]
  - Hyponatraemia [Unknown]
  - Body temperature increased [Recovered/Resolved]
  - Hypotension [Unknown]
  - Respiratory rate decreased [Unknown]
  - Blood creatinine increased [Recovered/Resolved]
  - Blood phosphorus decreased [Unknown]
  - Leukocytosis [Unknown]
  - Fibrin D dimer increased [Unknown]
  - Blood fibrinogen increased [Unknown]
  - C-reactive protein increased [Recovered/Resolved]
  - Red blood cell sedimentation rate [Unknown]
  - Procalcitonin increased [Recovered/Resolved]
  - Cough [Unknown]
  - Productive cough [Unknown]
  - Rhonchi [Unknown]
  - Speech disorder [Recovered/Resolved]
  - Perseveration [Unknown]
  - Verbigeration [Unknown]
  - Echolalia [Unknown]
  - Blood creatine phosphokinase increased [Recovered/Resolved]
  - Neuroleptic malignant syndrome [Recovered/Resolved]
  - Amnesia [Unknown]
  - Thrombocytopenia [Recovered/Resolved]
  - Tachycardia [Unknown]
  - Miosis [Unknown]
  - Hyperthermia [Recovered/Resolved]
  - Overdose [Unknown]
  - Hypokinesia [Unknown]
